FAERS Safety Report 25968462 (Version 1)
Quarter: 2025Q4

REPORT INFORMATION
  Report Type: Spontaneous
  Country: US (occurrence: US)
  Receive Date: 20251028
  Receipt Date: 20251028
  Transmission Date: 20260119
  Serious: Yes (Other)
  Sender: REGENERON
  Company Number: US-REGENERON PHARMACEUTICALS, INC.-2025-168806

PATIENT
  Sex: Female

DRUGS (2)
  1. EYLEA [Suspect]
     Active Substance: AFLIBERCEPT
     Indication: Neovascular age-related macular degeneration
     Dosage: UNK EVERY EIGHT WEEKS INTO ONE EYE (TREATED IN BOTH EYES); FORMULATION: UNKNOWN
     Route: 031
  2. EYLEA [Suspect]
     Active Substance: AFLIBERCEPT
     Dosage: UNK EVERY FOUR WEEKS INTO OTHER EYE; FORMULATION: UNKNOWN
     Route: 031

REACTIONS (3)
  - Neovascular age-related macular degeneration [Unknown]
  - Condition aggravated [Unknown]
  - Product dose omission issue [Unknown]
